FAERS Safety Report 4440800-5 (Version None)
Quarter: 2004Q3

REPORT INFORMATION
  Report Type: 
  Country: None (occurrence: None)
  Receive Date: 20040903
  Receipt Date: 20040607
  Transmission Date: 20050211
  Serious: Yes (Death)
  Sender: FDA-Public Use
  Company Number: FR-JNJFOC-20040502798

PATIENT
  Sex: Female

DRUGS (6)
  1. PROPULSID [Suspect]
     Route: 049
     Dates: start: 20031208, end: 20031220
  2. BETAMETHASONE [Concomitant]
     Dates: end: 20031221
  3. AUGMENTIN '125' [Concomitant]
     Dates: start: 20031210, end: 20031218
  4. AUGMENTIN '125' [Concomitant]
     Dates: start: 20031210, end: 20031218
  5. ILOMEDINE [Concomitant]
     Dates: start: 20031212, end: 20031221
  6. AMOXICILLIN [Concomitant]

REACTIONS (7)
  - BRONCHOPULMONARY DYSPLASIA [None]
  - CARDIO-RESPIRATORY ARREST [None]
  - ESCHERICHIA URINARY TRACT INFECTION [None]
  - PULMONARY HYPERTENSION [None]
  - STAPHYLOCOCCAL INFECTION [None]
  - SUPERINFECTION [None]
  - UPPER RESPIRATORY TRACT INFECTION [None]
